FAERS Safety Report 8249229-5 (Version None)
Quarter: 2012Q1

REPORT INFORMATION
  Report Type: 
  Country: None (occurrence: None)
  Receive Date: 20120327
  Receipt Date: 20120314
  Transmission Date: 20120608
  Serious: Yes (Hospitalization)
  Sender: FDA-Public Use
  Company Number: WAES 1203USA01712

PATIENT
  Age: 47 Year
  Sex: Female

DRUGS (9)
  1. ETRAVIRINE UNK [Suspect]
     Indication: HIV INFECTION
     Dates: start: 20120106
  2. TAB RALTEGRAVIR POTASSIUM UNK [Suspect]
     Indication: HIV INFECTION
     Dosage: 400 MG/BID/PO
     Route: 048
     Dates: start: 20120106, end: 20120205
  3. RITONAVIR [Suspect]
     Indication: HIV INFECTION
     Dates: start: 20120119
  4. RITONAVIR [Suspect]
     Indication: HIV INFECTION
     Dates: start: 20120106
  5. DARUNAVIR UNK [Suspect]
     Indication: HIV INFECTION
     Dates: start: 20120119, end: 20120205
  6. DARUNAVIR UNK [Suspect]
     Indication: HIV INFECTION
     Dates: start: 20120106
  7. DOLUTEGRAVIR UNK [Suspect]
     Indication: HIV INFECTION
     Dates: start: 20120106
  8. BLINDED THERAPY UNK [Suspect]
     Indication: HIV INFECTION
     Dosage: /PO
     Route: 048
     Dates: start: 20120106, end: 20120205
  9. LEVOTHYROXINE SODIUM [Concomitant]

REACTIONS (3)
  - OROPHARYNGEAL BLISTERING [None]
  - RASH PRURITIC [None]
  - RASH MACULO-PAPULAR [None]
